FAERS Safety Report 15362766 (Version 2)
Quarter: 2018Q3

REPORT INFORMATION
  Report Type: Spontaneous
  Country: CL (occurrence: CL)
  Receive Date: 20180907
  Receipt Date: 20180919
  Transmission Date: 20181010
  Serious: Yes (Other)
  Sender: FDA-Public Use
  Company Number: CL-ASTRAZENECA-2018SF10693

PATIENT
  Sex: Female

DRUGS (1)
  1. IRESSA [Suspect]
     Active Substance: GEFITINIB
     Dosage: 150.0MG UNKNOWN
     Route: 048

REACTIONS (3)
  - Neoplasm progression [Unknown]
  - Drug ineffective [Not Recovered/Not Resolved]
  - Drug prescribing error [Unknown]
